FAERS Safety Report 12384494 (Version 1)
Quarter: 2016Q2

REPORT INFORMATION
  Report Type: Spontaneous
  Country: US (occurrence: None)
  Receive Date: 20160518
  Receipt Date: 20160518
  Transmission Date: 20160815
  Serious: No
  Sender: FDA-Public Use
  Company Number: None

PATIENT
  Sex: Female

DRUGS (8)
  1. COLCRYS [Concomitant]
     Active Substance: COLCHICINE
  2. ALOPURINOL [Concomitant]
     Active Substance: ALLOPURINOL
  3. PREDNISON [Concomitant]
     Active Substance: PREDNISONE
  4. ENBREL [Suspect]
     Active Substance: ETANERCEPT
     Route: 058
     Dates: start: 20160310
  5. FOLIC ACID. [Concomitant]
     Active Substance: FOLIC ACID
  6. LEVOTHYROXINE. [Concomitant]
     Active Substance: LEVOTHYROXINE
  7. METHOTREXATE [Concomitant]
     Active Substance: METHOTREXATE
  8. LEUCOVORIN. [Concomitant]
     Active Substance: LEUCOVORIN

REACTIONS (2)
  - Condition aggravated [None]
  - Treatment noncompliance [None]

NARRATIVE: CASE EVENT DATE: 2016
